FAERS Safety Report 25891935 (Version 1)
Quarter: 2025Q4

REPORT INFORMATION
  Report Type: Spontaneous
  Country: US (occurrence: US)
  Receive Date: 20251007
  Receipt Date: 20251007
  Transmission Date: 20260117
  Serious: No
  Sender: SANOFI AVENTIS
  Company Number: US-SA-2024SA109782

PATIENT
  Age: 34 Year
  Sex: Female

DRUGS (1)
  1. DUPIXENT [Suspect]
     Active Substance: DUPILUMAB
     Indication: Dermatitis
     Dosage: 300 MG, QOW
     Route: 058

REACTIONS (6)
  - Periorbital eczema [Unknown]
  - Lacrimation increased [Unknown]
  - Eczema [Unknown]
  - Hyperhidrosis [Unknown]
  - Urinary tract infection [Unknown]
  - Product use in unapproved indication [Unknown]
